FAERS Safety Report 4948249-3 (Version None)
Quarter: 2006Q1

REPORT INFORMATION
  Report Type: 
  Country: None (occurrence: None)
  Receive Date: 20060127
  Receipt Date: 20050228
  Transmission Date: 20060701
  Serious: Yes (Other)
  Sender: FDA-Public Use
  Company Number: 05-02-0304

PATIENT
  Age: 49 Year
  Sex: Male
  Weight: 76.6579 kg

DRUGS (2)
  1. CLOZAPINE [Suspect]
     Indication: SCHIZOPHRENIA
     Dosage: 200MG BID, ORAL
     Route: 048
     Dates: start: 20050202, end: 20050224
  2. VALPROIC ACID [Concomitant]

REACTIONS (1)
  - AGRANULOCYTOSIS [None]
